FAERS Safety Report 8975444 (Version 1)
Quarter: 2012Q4

REPORT INFORMATION
  Report Type: 
  Country: US (occurrence: US)
  Receive Date: 20121219
  Receipt Date: 20121219
  Transmission Date: 20130627
  Serious: No
  Sender: FDA-Public Use
  Company Number: US-PFIZER INC-2012317865

PATIENT
  Age: 64 Year
  Sex: Female
  Weight: 63.49 kg

DRUGS (2)
  1. AZITHROMYCIN [Suspect]
     Indication: SINUS INFECTION
     Dosage: 500 mg, daily
     Dates: start: 20121212
  2. AZITHROMYCIN [Suspect]
     Indication: THROAT INFECTION

REACTIONS (1)
  - Malaise [Not Recovered/Not Resolved]
